FAERS Safety Report 6958439-6 (Version None)
Quarter: 2010Q3

REPORT INFORMATION
  Report Type: 
  Country: None (occurrence: None)
  Receive Date: 20100831
  Receipt Date: 20100823
  Transmission Date: 20110219
  Serious: Yes (Hospitalization)
  Sender: FDA-Public Use
  Company Number: US-ROCHE-707510

PATIENT
  Sex: Male
  Weight: 86.2 kg

DRUGS (7)
  1. PEGASYS [Suspect]
     Indication: HEPATITIS C
     Route: 058
     Dates: start: 20100330, end: 20100528
  2. RIBAVIRIN [Suspect]
     Indication: HEPATITIS C
     Route: 048
     Dates: start: 20100330, end: 20100528
  3. RISPERDAL [Concomitant]
  4. PRILOSEC [Concomitant]
  5. CITALOPRAM [Concomitant]
  6. TRAMADOL HCL [Concomitant]
  7. ZOCOR [Concomitant]

REACTIONS (5)
  - DIABETES MELLITUS [None]
  - DIABETIC KETOACIDOSIS [None]
  - NAUSEA [None]
  - PANCREATITIS ACUTE [None]
  - VOMITING [None]
